FAERS Safety Report 23863930 (Version 1)
Quarter: 2024Q2

REPORT INFORMATION
  Report Type: Spontaneous
  Country: US (occurrence: US)
  Receive Date: 20240516
  Receipt Date: 20240516
  Transmission Date: 20240715
  Serious: No
  Sender: FDA-Public Use
  Company Number: US-FreseniusKabi-FK202407584

PATIENT
  Age: 71 Year
  Sex: Female
  Weight: 51.7 kg

DRUGS (16)
  1. HEPARIN SODIUM [Suspect]
     Active Substance: HEPARIN SODIUM
     Indication: Catheterisation cardiac
     Dosage: FORM OF ADMIN: INJECTION?1442 ? 5,000 UNITS?1452 ? 5,000 UNITS?1457 ? 3,000 UNITS?1513 ? 2,000 UNITS
     Dates: start: 20240506, end: 20240506
  2. Ascorbic Acid (VITAMIN C PO) [Concomitant]
     Indication: Product used for unknown indication
     Dosage: ASCORBIC ACID (VITAMIN C PO)
  3. Multiple Vitamins-Minerals (CENTRUM WOMEN PO) [Concomitant]
     Indication: Product used for unknown indication
     Dosage: MULTIPLE VITAMINS-MINERALS (CENTRUM WOMEN PO)
  4. Omega-3 Fatty Acids (FISH OIL PO) [Concomitant]
     Indication: Product used for unknown indication
     Dosage: OMEGA-3 FATTY ACIDS (FISH OIL PO)
  5. VITAMIN D PO [Concomitant]
     Indication: Product used for unknown indication
     Dosage: VITAMIN D PO
  6. B-COMPLEX-C PO [Concomitant]
     Indication: Product used for unknown indication
     Dosage: B-COMPLEX-C PO
  7. clobetasol (TEMOVATE) 0.05 % external solution [Concomitant]
     Indication: Product used for unknown indication
     Dosage: 0.05 PERCENT EXTERNAL SOLUTION
  8. desonide (DESOWEN) 0.05 Percent ointment [Concomitant]
     Indication: Product used for unknown indication
     Dosage: 0.05 PERCENT OINTMENT
  9. Diclofenac Sodium 1 % gel [Concomitant]
     Indication: Product used for unknown indication
     Dosage: 1 PERCENT GEL
  10. Fluocinolone Acetonide 0.01 % oil [Concomitant]
     Indication: Product used for unknown indication
     Dosage: 0.01 PERCENT OIL
  11. hydrocortisone 2.5 Percent ointment [Concomitant]
     Indication: Product used for unknown indication
     Dosage: 2.5 PERCENT OINTMENT
  12. ketoconazole (NIZORAL) 2 % cream [Concomitant]
     Indication: Product used for unknown indication
     Dosage: 2 PERCENT CREAM
  13. NIFEdipine XL (PROCARDIA XL) 30 MG 24 hr tablet [Concomitant]
     Indication: Product used for unknown indication
     Dosage: 30 MG 24 HR TABLET
  14. olopatadine (PATANOL) 0.1 % ophthalmic solution [Concomitant]
     Indication: Product used for unknown indication
     Dosage: 0.1 PERCENT OPHTHALMIC SOLUTION
  15. pimecrolimus (ELIDEL) 1 % cream [Concomitant]
     Indication: Product used for unknown indication
     Dosage: PIMECROLIMUS (ELIDEL) 1 PERCENT CREAM
  16. tretinoin (RETIN-A) 0.025 Percent cream [Concomitant]
     Indication: Product used for unknown indication
     Dosage: TRETINOIN (RETIN-A) 0.025 PERCENT CREAM

REACTIONS (1)
  - Drug ineffective [Unknown]

NARRATIVE: CASE EVENT DATE: 20240506
